FAERS Safety Report 4341126-0 (Version None)
Quarter: 2004Q2

REPORT INFORMATION
  Report Type: 
  Country: None (occurrence: None)
  Receive Date: 20040413
  Receipt Date: 20040330
  Transmission Date: 20050107
  Serious: Yes (Hospitalization)
  Sender: FDA-Public Use
  Company Number: 04P-056-0255246-00

PATIENT
  Age: 45 Year
  Sex: Male

DRUGS (3)
  1. DEPAKENE [Suspect]
     Indication: EPILEPSY
     Dosage: 500 MG, 1 IN 1 D, ORAL
     Route: 048
     Dates: start: 20030905, end: 20040229
  2. CO-ADVIL [Suspect]
     Dosage: 460 MG, 1 IN 1 D, ORAL
     Route: 048
     Dates: start: 20040226, end: 20040229
  3. LAMOTRIGINE [Concomitant]

REACTIONS (2)
  - PANCREATITIS ACUTE [None]
  - SYNCOPE VASOVAGAL [None]
